FAERS Safety Report 23323682 (Version 1)
Quarter: 2023Q4

REPORT INFORMATION
  Report Type: Other
  Country: US (occurrence: None)
  Receive Date: 20231220
  Receipt Date: 20231220
  Transmission Date: 20240110
  Serious: Yes (Hospitalization)
  Sender: FDA-Public Use
  Company Number: US-ROCHE-3436663

PATIENT
  Age: 54 Year
  Sex: Male

DRUGS (4)
  1. RITUXIMAB [Suspect]
     Active Substance: RITUXIMAB
     Indication: Granulomatosis with polyangiitis
     Route: 065
  2. PREDNISONE [Suspect]
     Active Substance: PREDNISONE
     Indication: Granulomatosis with polyangiitis
     Route: 065
  3. AVACOPAN [Suspect]
     Active Substance: AVACOPAN
     Indication: Granulomatosis with polyangiitis
     Route: 065
  4. METHYLPREDNISOLONE [Concomitant]
     Active Substance: METHYLPREDNISOLONE
     Dosage: 3 DAYS
     Route: 065

REACTIONS (1)
  - Pneumonia [Unknown]
